FAERS Safety Report 8654045 (Version 3)
Quarter: 2014Q1

REPORT INFORMATION
  Report Type: Report from Study
  Country: CA (occurrence: CA)
  Receive Date: 20120709
  Receipt Date: 20140331
  Transmission Date: 20141002
  Serious: Yes (Death, Hospitalization)
  Sender: FDA-Public Use
  Company Number: CA-JNJFOC-20120701790

PATIENT
  Age: 53 Year
  Sex: Male
  Weight: 98 kg

DRUGS (6)
  1. REMICADE [Suspect]
     Indication: RHEUMATOID ARTHRITIS
     Dosage: 0, 2, 6 AND 8 WEEKS
     Route: 042
     Dates: start: 20091127
  2. REMICADE [Suspect]
     Indication: RHEUMATOID ARTHRITIS
     Route: 042
     Dates: end: 20120424
  3. REMICADE [Suspect]
     Indication: PSORIATIC ARTHROPATHY
     Route: 042
     Dates: end: 20120424
  4. REMICADE [Suspect]
     Indication: PSORIATIC ARTHROPATHY
     Dosage: 0, 2, 6 AND 8 WEEKS
     Route: 042
     Dates: start: 20091127
  5. METHOTREXATE [Suspect]
     Indication: RHEUMATOID ARTHRITIS
     Route: 048
  6. COUMADIN [Concomitant]
     Route: 048

REACTIONS (4)
  - Respiratory failure [Fatal]
  - Toxicity to various agents [Fatal]
  - Pneumonia [Unknown]
  - Thrombosis [Unknown]
